FAERS Safety Report 20040197 (Version 1)
Quarter: 2021Q4

REPORT INFORMATION
  Report Type: Report from Study
  Country: US (occurrence: US)
  Receive Date: 20211106
  Receipt Date: 20211106
  Transmission Date: 20220303
  Serious: Yes (Hospitalization, Other)
  Sender: FDA-Public Use
  Company Number: US-TAKEDA-US201807911

PATIENT
  Age: 45 Year
  Sex: Female
  Weight: 130 kg

DRUGS (14)
  1. TEDUGLUTIDE [Suspect]
     Active Substance: TEDUGLUTIDE
     Indication: Short-bowel syndrome
     Dosage: 999 MILLIGRAM/KILOGRAM, QD
     Route: 065
     Dates: start: 201604, end: 20160620
  2. TEDUGLUTIDE [Suspect]
     Active Substance: TEDUGLUTIDE
     Indication: Short-bowel syndrome
     Dosage: 999 MILLIGRAM/KILOGRAM, QD
     Route: 065
     Dates: start: 201604, end: 20160620
  3. TEDUGLUTIDE [Suspect]
     Active Substance: TEDUGLUTIDE
     Indication: Short-bowel syndrome
     Dosage: 999 MILLIGRAM/KILOGRAM, QD
     Route: 065
     Dates: start: 201604, end: 20160620
  4. TEDUGLUTIDE [Suspect]
     Active Substance: TEDUGLUTIDE
     Indication: Short-bowel syndrome
     Dosage: 999 MILLIGRAM/KILOGRAM, QD
     Route: 065
     Dates: start: 201604, end: 20160620
  5. TEDUGLUTIDE [Suspect]
     Active Substance: TEDUGLUTIDE
     Dosage: 999 MILLIGRAM/KILOGRAM
     Route: 065
     Dates: start: 20160914, end: 201710
  6. TEDUGLUTIDE [Suspect]
     Active Substance: TEDUGLUTIDE
     Dosage: 999 MILLIGRAM/KILOGRAM
     Route: 065
     Dates: start: 20160914, end: 201710
  7. TEDUGLUTIDE [Suspect]
     Active Substance: TEDUGLUTIDE
     Dosage: 999 MILLIGRAM/KILOGRAM
     Route: 065
     Dates: start: 20160914, end: 201710
  8. TEDUGLUTIDE [Suspect]
     Active Substance: TEDUGLUTIDE
     Dosage: 999 MILLIGRAM/KILOGRAM
     Route: 065
     Dates: start: 20160914, end: 201710
  9. DILAUDID [Concomitant]
     Active Substance: HYDROMORPHONE HYDROCHLORIDE
     Indication: Crohn^s disease
  10. SEROQUEL [Concomitant]
     Active Substance: QUETIAPINE FUMARATE
     Indication: Anxiety
  11. REGLAN [Concomitant]
     Active Substance: METOCLOPRAMIDE HYDROCHLORIDE
     Indication: Nausea
  12. NYSTATIN [Concomitant]
     Active Substance: NYSTATIN
     Indication: Product used for unknown indication
  13. MACROBID [Concomitant]
     Active Substance: NITROFURANTOIN\NITROFURANTOIN MONOHYDRATE
     Indication: Urinary tract infection
     Dosage: UNK
     Route: 065
     Dates: start: 2017
  14. RIFAXIMIN [Concomitant]
     Active Substance: RIFAXIMIN
     Indication: Small intestinal obstruction
     Dosage: 550 MILLIGRAM, TID
     Route: 048
     Dates: start: 2017

REACTIONS (1)
  - Crohn^s disease [Recovered/Resolved]

NARRATIVE: CASE EVENT DATE: 20180203
